FAERS Safety Report 23210081 (Version 2)
Quarter: 2023Q4

REPORT INFORMATION
  Report Type: Spontaneous
  Country: BR (occurrence: BR)
  Receive Date: 20231121
  Receipt Date: 20231206
  Transmission Date: 20240110
  Serious: No
  Sender: FDA-Public Use
  Company Number: BR-ASTELLAS-2023US034775

PATIENT
  Age: 79 Year
  Sex: Female

DRUGS (1)
  1. MYRBETRIQ [Suspect]
     Active Substance: MIRABEGRON
     Indication: Urinary incontinence
     Dosage: 50 MG, ONCE DAILY (DAILY AT NIGHT)
     Route: 048
     Dates: start: 20231019

REACTIONS (2)
  - White blood cell count increased [Not Recovered/Not Resolved]
  - Therapeutic product effect incomplete [Unknown]
